FAERS Safety Report 9892870 (Version 3)
Quarter: 2014Q1

REPORT INFORMATION
  Report Type: Spontaneous
  Country: CH (occurrence: CH)
  Receive Date: 20140213
  Receipt Date: 20140305
  Transmission Date: 20141002
  Serious: Yes (Hospitalization, Other)
  Sender: FDA-Public Use
  Company Number: CH-ROCHE-1343396

PATIENT
  Age: 27 Year
  Sex: Female

DRUGS (1)
  1. LUCENTIS [Suspect]
     Indication: DIABETIC RETINAL OEDEMA
     Dosage: . ON 20 DEC 2013, SHE RECEIVED LAST INJECTION OF RANIBIZUMAB BEFORE EVENT ONSET.
     Route: 050

REACTIONS (4)
  - Visual acuity reduced [Recovering/Resolving]
  - Hypopyon [Recovering/Resolving]
  - Endophthalmitis [Unknown]
  - Pain [Recovering/Resolving]
